FAERS Safety Report 8194422-3 (Version None)
Quarter: 2012Q1

REPORT INFORMATION
  Report Type: 
  Country: None (occurrence: None)
  Receive Date: 20120308
  Receipt Date: 20120305
  Transmission Date: 20120608
  Serious: Yes (Hospitalization, Other)
  Sender: FDA-Public Use
  Company Number: US-PFIZER INC-2012058924

PATIENT
  Sex: Female
  Weight: 48.526 kg

DRUGS (1)
  1. ZOLOFT [Suspect]
     Indication: DEPRESSION
     Dosage: 100 MG, 1X/DAY
     Route: 048
     Dates: start: 19940101

REACTIONS (4)
  - HERNIA [None]
  - MALNUTRITION [None]
  - DEHYDRATION [None]
  - POLYP [None]
